FAERS Safety Report 15167457 (Version 11)
Quarter: 2018Q4

REPORT INFORMATION
  Report Type: Report from Study
  Country: BE (occurrence: BE)
  Receive Date: 20180719
  Receipt Date: 20181213
  Transmission Date: 20190204
  Serious: Yes (Other)
  Sender: FDA-Public Use
  Company Number: BE-BRISTOL-MYERS SQUIBB COMPANY-BMS-2018-066224

PATIENT
  Age: 47 Year
  Sex: Female

DRUGS (6)
  1. NIVOLUMAB [Suspect]
     Active Substance: NIVOLUMAB
     Indication: PRODUCT USED FOR UNKNOWN INDICATION
     Dosage: UNK, Q4WK
     Route: 042
     Dates: start: 20180926
  2. KEPPRA [Concomitant]
     Active Substance: LEVETIRACETAM
     Indication: PRODUCT USED FOR UNKNOWN INDICATION
     Dosage: 1 DF (2X1000MG/DAY)
     Route: 065
     Dates: end: 20180626
  3. MEDROL [Concomitant]
     Active Substance: METHYLPREDNISOLONE
     Indication: PRODUCT USED FOR UNKNOWN INDICATION
     Dosage: 48 MG, QD
     Route: 065
  4. DEXAMETHASONE. [Concomitant]
     Active Substance: DEXAMETHASONE
     Indication: PRODUCT USED FOR UNKNOWN INDICATION
     Dosage: 8 MG EVERY 2 DAYS
     Route: 065
     Dates: end: 20180626
  5. IPILIMUMAB [Suspect]
     Active Substance: IPILIMUMAB
     Indication: MALIGNANT MELANOMA
     Dosage: UNK
     Route: 065
     Dates: start: 20180626, end: 20180807
  6. NIVOLUMAB [Suspect]
     Active Substance: NIVOLUMAB
     Indication: MALIGNANT MELANOMA
     Dosage: UNK
     Route: 065
     Dates: start: 20180626, end: 20180807

REACTIONS (16)
  - Muscular weakness [Recovering/Resolving]
  - Skin reaction [Recovered/Resolved]
  - Fatigue [Recovering/Resolving]
  - Defaecation urgency [Recovered/Resolved]
  - Gait disturbance [Not Recovered/Not Resolved]
  - Eye disorder [Unknown]
  - Brain oedema [Unknown]
  - Mood altered [Unknown]
  - Pyrexia [Recovered/Resolved]
  - Weight increased [Unknown]
  - Diarrhoea [Not Recovered/Not Resolved]
  - Liver function test abnormal [Recovered/Resolved]
  - Hypotonia [Recovering/Resolving]
  - Rash [Recovered/Resolved]
  - Abdominal distension [Not Recovered/Not Resolved]
  - Dyspnoea [Unknown]

NARRATIVE: CASE EVENT DATE: 20180626
